FAERS Safety Report 17651232 (Version 1)
Quarter: 2020Q2

REPORT INFORMATION
  Report Type: Report from Study
  Country: None (occurrence: US)
  Receive Date: 20200408
  Receipt Date: 20200408
  Transmission Date: 20200713
  Serious: Yes (Other)
  Sender: FDA-Public Use
  Company Number: US-ABBVIE-20K-163-3297410-00

PATIENT
  Sex: Female

DRUGS (2)
  1. HUMIRA [Suspect]
     Active Substance: ADALIMUMAB
     Indication: CROHN^S DISEASE
  2. HUMIRA [Suspect]
     Active Substance: ADALIMUMAB
     Indication: PSORIATIC ARTHROPATHY
     Route: 058

REACTIONS (15)
  - Vein collapse [Unknown]
  - Anxiety [Unknown]
  - Gait disturbance [Unknown]
  - Pain in extremity [Unknown]
  - Vein collapse [Unknown]
  - Condition aggravated [Unknown]
  - Back pain [Unknown]
  - Arthralgia [Unknown]
  - Back pain [Unknown]
  - Pain in extremity [Unknown]
  - Insomnia [Unknown]
  - Impaired driving ability [Unknown]
  - Arthralgia [Unknown]
  - Intervertebral disc degeneration [Unknown]
  - Sciatica [Unknown]

NARRATIVE: CASE EVENT DATE: 2018
